FAERS Safety Report 15518493 (Version 3)
Quarter: 2018Q4

REPORT INFORMATION
  Report Type: Spontaneous
  Country: IE (occurrence: IE)
  Receive Date: 20181017
  Receipt Date: 20181025
  Transmission Date: 20190205
  Serious: Yes (Hospitalization)
  Sender: FDA-Public Use
  Company Number: IE-PFIZER INC-2018416030

PATIENT
  Age: 78 Year
  Sex: Male
  Weight: 76 kg

DRUGS (2)
  1. REVATIO [Suspect]
     Active Substance: SILDENAFIL CITRATE
     Indication: PULMONARY HYPERTENSION
     Dosage: UNK
     Route: 048
     Dates: start: 20181003, end: 20181013
  2. ENTRESTO [Suspect]
     Active Substance: SACUBITRIL\VALSARTAN
     Indication: PULMONARY HYPERTENSION
     Dosage: UNK
     Route: 048
     Dates: start: 20181003, end: 20181013

REACTIONS (4)
  - Dyspnoea [Unknown]
  - Chest pain [Recovered/Resolved with Sequelae]
  - Asthenia [Unknown]
  - Pain [Recovered/Resolved with Sequelae]
